FAERS Safety Report 5053786-X (Version None)
Quarter: 2006Q3

REPORT INFORMATION
  Report Type: 
  Country: None (occurrence: None)
  Receive Date: 20060710
  Receipt Date: 20060628
  Transmission Date: 20061208
  Serious: Yes (Death, Other)
  Sender: FDA-Public Use
  Company Number: 2006066805

PATIENT
  Age: 31 Year
  Sex: Male

DRUGS (12)
  1. ATARAX [Suspect]
     Indication: ILL-DEFINED DISORDER
     Dosage: 200 MG (1 D), ORAL
     Route: 048
     Dates: start: 20060207, end: 20060212
  2. METHADONE HCL [Suspect]
     Indication: ILL-DEFINED DISORDER
     Dosage: SEE IMAGE
     Dates: start: 20060201, end: 20060201
  3. METHADONE HCL [Suspect]
     Indication: ILL-DEFINED DISORDER
     Dosage: SEE IMAGE
     Dates: start: 20060209, end: 20060209
  4. METHADONE HCL [Suspect]
     Indication: ILL-DEFINED DISORDER
     Dosage: SEE IMAGE
     Dates: start: 20060210, end: 20060210
  5. METHADONE HCL [Suspect]
     Indication: ILL-DEFINED DISORDER
     Dosage: SEE IMAGE
     Dates: start: 20060211, end: 20060211
  6. METHADONE HCL [Suspect]
     Indication: ILL-DEFINED DISORDER
     Dosage: SEE IMAGE
     Dates: start: 20060207, end: 20060212
  7. METHADONE HCL [Suspect]
     Indication: ILL-DEFINED DISORDER
     Dosage: SEE IMAGE
     Dates: start: 20060212, end: 20060212
  8. CLONAZEPAM [Suspect]
     Indication: ILL-DEFINED DISORDER
     Dosage: 6 MG (2 MG, 3 IN 1 D), ORAL
     Route: 048
     Dates: start: 20060206, end: 20060212
  9. BACTRIM [Suspect]
     Indication: ILL-DEFINED DISORDER
     Dosage: 2 DF (1 D), ORAL
     Route: 048
     Dates: start: 20060210, end: 20060212
  10. ACETAMINOPHEN W/ PROPOXYPHENE HCL [Suspect]
     Indication: ILL-DEFINED DISORDER
     Dosage: 6 DF (1 D), ORAL
     Route: 048
     Dates: start: 20060210, end: 20060211
  11. TERCIAN (CYAMEMAZINE) [Suspect]
     Indication: ILL-DEFINED DISORDER
     Dosage: ORAL
     Route: 048
     Dates: start: 20060206, end: 20060212
  12. SMECTITE (SMECTITE) [Concomitant]

REACTIONS (15)
  - ABDOMINAL TENDERNESS [None]
  - ARRHYTHMIA [None]
  - ATRIAL FIBRILLATION [None]
  - BALANCE DISORDER [None]
  - BODY TEMPERATURE INCREASED [None]
  - CARDIAC ARREST [None]
  - CONFUSIONAL STATE [None]
  - CONSTIPATION [None]
  - DISORIENTATION [None]
  - HYPERHIDROSIS [None]
  - MALAISE [None]
  - MUSCLE RIGIDITY [None]
  - MYDRIASIS [None]
  - RESPIRATORY ARREST [None]
  - TREMOR [None]
